FAERS Safety Report 23749047 (Version 1)
Quarter: 2024Q2

REPORT INFORMATION
  Report Type: Spontaneous
  Country: US (occurrence: US)
  Receive Date: 20240416
  Receipt Date: 20240416
  Transmission Date: 20240716
  Serious: No
  Sender: FDA-Public Use
  Company Number: US-VER-202400062

PATIENT
  Sex: Male

DRUGS (3)
  1. TRELSTAR [Suspect]
     Active Substance: TRIPTORELIN PAMOATE
     Indication: Prostate cancer
     Dosage: 11.25 MG
     Route: 065
     Dates: start: 20230802, end: 20230802
  2. TRELSTAR [Suspect]
     Active Substance: TRIPTORELIN PAMOATE
     Indication: Prostate cancer
     Dosage: 11.25 MG
     Route: 065
     Dates: start: 20231026, end: 20231026
  3. TRELSTAR [Suspect]
     Active Substance: TRIPTORELIN PAMOATE
     Indication: Prostate cancer
     Dosage: 11.25 MG
     Route: 065
     Dates: start: 202401, end: 202401

REACTIONS (3)
  - Condition aggravated [Unknown]
  - Hypoaesthesia oral [Unknown]
  - Erythema [Unknown]

NARRATIVE: CASE EVENT DATE: 20231201
